FAERS Safety Report 8318769-2 (Version None)
Quarter: 2012Q2

REPORT INFORMATION
  Report Type: 
  Country: None (occurrence: None)
  Receive Date: 20120427
  Receipt Date: 20120419
  Transmission Date: 20120825
  Serious: Yes (Hospitalization, Other)
  Sender: FDA-Public Use
  Company Number: US-ABBOTT-12P-163-0927305-00

PATIENT
  Sex: Female
  Weight: 59.02 kg

DRUGS (4)
  1. APRISO [Concomitant]
     Indication: PRODUCT USED FOR UNKNOWN INDICATION
  2. EFFEXOR XR [Concomitant]
     Indication: PRODUCT USED FOR UNKNOWN INDICATION
  3. HUMIRA [Suspect]
     Indication: CROHN'S DISEASE
     Dates: start: 20110501
  4. PREVACID [Concomitant]
     Indication: PRODUCT USED FOR UNKNOWN INDICATION
     Dosage: 1-2 PER DAY

REACTIONS (16)
  - CROHN'S DISEASE [None]
  - AMNESIA [None]
  - DISTURBANCE IN ATTENTION [None]
  - HEAD INJURY [None]
  - LIP SWELLING [None]
  - HEADACHE [None]
  - ACCIDENT [None]
  - NAUSEA [None]
  - CONCUSSION [None]
  - GINGIVAL SWELLING [None]
  - SUBCUTANEOUS ABSCESS [None]
  - HAEMORRHOIDS [None]
  - PROCTALGIA [None]
  - RETROGRADE AMNESIA [None]
  - RECTAL OBSTRUCTION [None]
  - SYNOVIAL CYST [None]
